FAERS Safety Report 5590064-4 (Version None)
Quarter: 2008Q1

REPORT INFORMATION
  Report Type: 
  Country: None (occurrence: None)
  Receive Date: 20080114
  Receipt Date: 20080107
  Transmission Date: 20080703
  Serious: Yes (Life-Threatening, Hospitalization)
  Sender: FDA-Public Use
  Company Number: US-ELI_LILLY_AND_COMPANY-US200710005000

PATIENT
  Age: 50 Year
  Sex: Male
  Weight: 72.562 kg

DRUGS (7)
  1. CYMBALTA [Suspect]
     Indication: PAIN
     Dosage: 120 MG, UNK
  2. CYMBALTA [Suspect]
     Dosage: 60 MG, UNK
     Dates: end: 20070101
  3. CYMBALTA [Suspect]
     Dosage: 1 D/F, UNK
     Dates: start: 20070101, end: 20070101
  4. WELLBUTRIN XL [Concomitant]
     Dosage: 150 MG, DAILY (1/D)
  5. OXYCODONE [Concomitant]
     Dosage: 45 MG, AS NEEDED
  6. LUNESTA [Concomitant]
     Dosage: 3 MG, UNK
  7. EFFEXOR XR [Concomitant]
     Dosage: 25 MG, UNK

REACTIONS (4)
  - DEPRESSION [None]
  - DRUG WITHDRAWAL SYNDROME [None]
  - SUICIDAL IDEATION [None]
  - WEIGHT INCREASED [None]
